FAERS Safety Report 9433917 (Version 1)
Quarter: 2013Q3

REPORT INFORMATION
  Report Type: Spontaneous
  Country: ES (occurrence: ES)
  Receive Date: 20130801
  Receipt Date: 20130801
  Transmission Date: 20140515
  Serious: Yes (Other)
  Sender: FDA-Public Use
  Company Number: PHHY2013ES078642

PATIENT
  Age: 41 Year
  Sex: Female

DRUGS (2)
  1. RISPERIDONE [Suspect]
     Indication: STRESS
  2. DOSTINEX [Concomitant]
     Indication: SUPPRESSED LACTATION
     Dosage: 0.25 MG, UNK

REACTIONS (2)
  - Suicide attempt [Unknown]
  - Overdose [Unknown]
